FAERS Safety Report 18378088 (Version 1)
Quarter: 2020Q4

REPORT INFORMATION
  Report Type: Spontaneous
  Country: NL (occurrence: NL)
  Receive Date: 20201013
  Receipt Date: 20201013
  Transmission Date: 20210114
  Serious: Yes (Other)
  Sender: FDA-Public Use
  Company Number: NL-MYLANLABS-2020M1085373

PATIENT
  Sex: Female
  Weight: 74 kg

DRUGS (2)
  1. DOXYCYCLINE. [Suspect]
     Active Substance: DOXYCYCLINE
     Indication: ERYTHEMA MIGRANS
     Dosage: 100 MILLIGRAM, BID(2 X PER DAG 1 STUK)
     Dates: start: 20200904, end: 20200907
  2. ATORVASTATINE                      /01326101/ [Concomitant]
     Active Substance: ATORVASTATIN
     Dosage: TABLET, 20 MG (MILLIGRAM)

REACTIONS (3)
  - Hemianopia [Recovered/Resolved]
  - Illusion [Recovered/Resolved]
  - Vision blurred [Recovered/Resolved]
